FAERS Safety Report 6299467-6 (Version None)
Quarter: 2009Q3

REPORT INFORMATION
  Report Type: 
  Country: None (occurrence: None)
  Receive Date: 20090806
  Receipt Date: 20090730
  Transmission Date: 20100115
  Serious: Yes (Other)
  Sender: FDA-Public Use
  Company Number: B0563644A

PATIENT
  Sex: Male

DRUGS (5)
  1. ARIXTRA [Suspect]
     Indication: THROMBOSIS PROPHYLAXIS
     Dosage: 2.5MG PER DAY
     Route: 058
     Dates: start: 20090123, end: 20090126
  2. UNKNOWN DRUG [Concomitant]
     Indication: ALCOHOLIC LIVER DISEASE
     Dosage: 200MG PER DAY
     Route: 048
     Dates: start: 20061120, end: 20090126
  3. UNKNOWN DRUG [Concomitant]
     Dosage: 200MG PER DAY
     Route: 048
     Dates: start: 20090203
  4. UNKNOWN DRUG [Concomitant]
     Dosage: 60MG PER DAY
     Route: 048
     Dates: start: 20080601, end: 20090126
  5. UNKNOWN DRUG [Concomitant]
     Dosage: 60MG PER DAY
     Route: 048
     Dates: start: 20090203

REACTIONS (5)
  - ANAEMIA [None]
  - GASTRIC HAEMORRHAGE [None]
  - HAEMATEMESIS [None]
  - HEPATIC FUNCTION ABNORMAL [None]
  - THROMBOSIS [None]
